FAERS Safety Report 10492861 (Version 1)
Quarter: 2014Q4

REPORT INFORMATION
  Report Type: Spontaneous
  Country: US (occurrence: US)
  Receive Date: 20141002
  Receipt Date: 20141002
  Transmission Date: 20150528
  Serious: No
  Sender: FDA-Public Use
  Company Number: US-GLAXOSMITHKLINE-A1076282A

PATIENT
  Sex: Female

DRUGS (4)
  1. ADVAIR HFA [Suspect]
     Active Substance: FLUTICASONE PROPIONATE\SALMETEROL XINAFOATE
     Indication: ASTHMA
     Dosage: 1PUFF VARIABLE DOSE
     Route: 055
     Dates: start: 2010
  2. MOTRIN [Concomitant]
     Active Substance: IBUPROFEN
  3. TRAMADOL [Concomitant]
     Active Substance: TRAMADOL
  4. PROAIR HFA [Concomitant]
     Active Substance: ALBUTEROL SULFATE

REACTIONS (7)
  - Feeling abnormal [Unknown]
  - Drug administration error [Unknown]
  - Foot fracture [Unknown]
  - Fall [Unknown]
  - Fractured coccyx [Not Recovered/Not Resolved]
  - Tooth loss [Unknown]
  - Hand fracture [Unknown]

NARRATIVE: CASE EVENT DATE: 2010
